FAERS Safety Report 9154087 (Version 2)
Quarter: 2013Q2

REPORT INFORMATION
  Report Type: Spontaneous
  Country: US (occurrence: US)
  Receive Date: 20130311
  Receipt Date: 20130402
  Transmission Date: 20140414
  Serious: No
  Sender: FDA-Public Use
  Company Number: US-PFIZER INC-2013079666

PATIENT
  Sex: Female

DRUGS (2)
  1. ZOLOFT [Suspect]
     Dosage: 50 MG, UNK
     Dates: start: 1989
  2. LIPITOR [Suspect]
     Dosage: 40 MG, UNK
     Dates: start: 1989

REACTIONS (2)
  - Malaise [Unknown]
  - Influenza [Unknown]
